FAERS Safety Report 9808262 (Version 1)
Quarter: 2014Q1

REPORT INFORMATION
  Report Type: Spontaneous
  Country: JP (occurrence: JP)
  Receive Date: 20140110
  Receipt Date: 20140110
  Transmission Date: 20141002
  Serious: Yes (Other)
  Sender: FDA-Public Use
  Company Number: JP-SA-2014SA001844

PATIENT
  Age: 50 Year
  Sex: Male

DRUGS (6)
  1. OXALIPLATIN [Suspect]
     Indication: GASTRIC CANCER
     Route: 065
     Dates: start: 20120724
  2. OXALIPLATIN [Suspect]
     Indication: RECTAL CANCER
     Route: 065
     Dates: start: 20120724
  3. OXALIPLATIN [Suspect]
     Indication: GASTRIC CANCER
     Route: 065
  4. OXALIPLATIN [Suspect]
     Indication: RECTAL CANCER
     Route: 065
  5. S-1 [Suspect]
     Indication: GASTRIC CANCER
     Route: 065
     Dates: start: 20120724
  6. S-1 [Suspect]
     Indication: RECTAL CANCER
     Route: 065
     Dates: start: 20120724

REACTIONS (4)
  - Peripheral nerve injury [Unknown]
  - Nausea [Unknown]
  - Decreased appetite [Unknown]
  - Fatigue [Unknown]
